FAERS Safety Report 8832071 (Version 2)
Quarter: 2012Q4

REPORT INFORMATION
  Report Type: 
  Country: JP (occurrence: JP)
  Receive Date: 20121009
  Receipt Date: 20121102
  Transmission Date: 20130627
  Serious: No
  Sender: FDA-Public Use
  Company Number: JP-B.I. PHARMACEUTICALS,INC./RIDGEFIELD-2012-BP-24243NB

PATIENT
  Age: 43 Year
  Sex: Male

DRUGS (4)
  1. MICARDIS [Suspect]
     Indication: HYPERTENSION
     Dosage: 40 mg
     Route: 048
     Dates: start: 20120720, end: 20121002
  2. NORVASC [Suspect]
     Indication: HYPERTENSION
     Dosage: 10 mg
     Route: 048
  3. HERBESSER [Suspect]
     Indication: HYPERTENSION
     Route: 048
  4. KIKLIN [Concomitant]
     Indication: DIALYSIS
     Route: 065
     Dates: start: 201207

REACTIONS (1)
  - Hypoglycaemia [Recovered/Resolved]
